FAERS Safety Report 4475923-8 (Version None)
Quarter: 2004Q4

REPORT INFORMATION
  Report Type: 
  Country: None (occurrence: None)
  Receive Date: 20041012
  Receipt Date: 20040929
  Transmission Date: 20050328
  Serious: Yes (Hospitalization, Other)
  Sender: FDA-Public Use
  Company Number: 2003033328

PATIENT
  Age: 59 Year
  Sex: Female

DRUGS (9)
  1. ZELDOX (CAPSULES) (ZIPRASIDONE) [Suspect]
     Indication: SCHIZOAFFECTIVE DISORDER
     Dosage: 40 MG (20 MG, 2 IN 1 D), ORAL
     Route: 048
     Dates: start: 20030415, end: 20030618
  2. ZELDOX (CAPSULES) (ZIPRASIDONE) [Suspect]
     Indication: THINKING ABNORMAL
     Dosage: 40 MG (20 MG, 2 IN 1 D), ORAL
     Route: 048
     Dates: start: 20030415, end: 20030618
  3. ESOMEPRAZOLE (ESOMEPRAZOLE) [Concomitant]
  4. SALUTEC (HYDROCHLOROTHIAZIDE, RAMIPRIL) [Concomitant]
  5. LEVOTHYROXINE SODIUM [Concomitant]
  6. PHENPROCOUMON (PHENPROCOUMON) [Concomitant]
  7. FLUPENTIXOL DIHYDROCHLORIDE (FLUPENTIXOL DIHYDROCHLORIDE) [Concomitant]
  8. FLUANXOL (FLUPENTIXOL DIHYDROCHLORIDE) [Concomitant]
  9. HALOPERIDOL [Concomitant]

REACTIONS (7)
  - CONVULSION [None]
  - FALL [None]
  - FEELING ABNORMAL [None]
  - HIP FRACTURE [None]
  - HUMERUS FRACTURE [None]
  - PERIPHERAL NERVE INJURY [None]
  - UPPER LIMB FRACTURE [None]
